FAERS Safety Report 9532468 (Version 2)
Quarter: 2013Q4

REPORT INFORMATION
  Report Type: Spontaneous
  Country: US (occurrence: None)
  Receive Date: 20130916
  Receipt Date: 20131108
  Transmission Date: 20140711
  Serious: Yes (Disabling)
  Sender: FDA-Public Use
  Company Number: ACO_38360_2013

PATIENT
  Age: 43 Year
  Sex: Female
  Weight: 53.5 kg

DRUGS (6)
  1. AMPYRA [Suspect]
     Indication: GAIT DISTURBANCE
     Route: 048
  2. CYCLOSPORINE (CICLOSPORIN) [Concomitant]
  3. LORTAB (HYDROCODONE BITARTRATE, PARACETAMOL) [Concomitant]
  4. GABAPENTIN GABAPENTIN) [Concomitant]
  5. OXCARBAZEPINE (OXCARBAZEPINE) TABLET, 300MG [Concomitant]
  6. ACYCLOVIR (ACICLOVIR) (ACICLOVIR) [Concomitant]

REACTIONS (6)
  - Movement disorder [None]
  - Activities of daily living impaired [None]
  - Gait disturbance [None]
  - Condition aggravated [None]
  - Musculoskeletal stiffness [None]
  - Treatment noncompliance [None]
